FAERS Safety Report 21480968 (Version 1)
Quarter: 2022Q4

REPORT INFORMATION
  Report Type: Other
  Country: None (occurrence: CO)
  Receive Date: 20221019
  Receipt Date: 20221019
  Transmission Date: 20230113
  Serious: Yes (Hospitalization, Other)
  Sender: FDA-Public Use
  Company Number: CO-Breckenridge Pharmaceutical, Inc.-2133986

PATIENT
  Age: 55 Year
  Sex: Female

DRUGS (2)
  1. ZOLEDRONIC ACID [Suspect]
     Active Substance: ZOLEDRONIC ACID
     Indication: Osteoporosis
     Route: 042
  2. DENOSUMAB [Suspect]
     Active Substance: DENOSUMAB

REACTIONS (2)
  - Erythema nodosum [Recovered/Resolved]
  - Calciphylaxis [Recovered/Resolved]
